FAERS Safety Report 7465490-9 (Version None)
Quarter: 2011Q2

REPORT INFORMATION
  Report Type: 
  Country: None (occurrence: None)
  Receive Date: 20110509
  Receipt Date: 20110428
  Transmission Date: 20111010
  Serious: Yes (Death)
  Sender: FDA-Public Use
  Company Number: US-ROCHE-769490

PATIENT
  Sex: Male

DRUGS (12)
  1. GLYBURIDE [Concomitant]
  2. RALTEGRAVIR [Concomitant]
  3. ROSUVASTATIN CALCIUM [Concomitant]
  4. AMLODIPINE BESYLATE [Concomitant]
  5. TIPRANAVIR [Concomitant]
  6. TRUVADA [Concomitant]
  7. MOTRIN [Concomitant]
  8. FUZEON [Suspect]
     Dosage: FORM : SYRINGE
     Route: 058
     Dates: start: 20080101
  9. LISINOPRIL [Concomitant]
  10. EZETIMIBE [Concomitant]
  11. FENOFIBRATE [Concomitant]
  12. RITONAVIR [Concomitant]

REACTIONS (3)
  - UNDERDOSE [None]
  - INFECTION [None]
  - NO ADVERSE EVENT [None]
